FAERS Safety Report 6109086-X (Version None)
Quarter: 2009Q1

REPORT INFORMATION
  Report Type: 
  Country: None (occurrence: None)
  Receive Date: 20090310
  Receipt Date: 20090303
  Transmission Date: 20090719
  Serious: Yes (Death, Other)
  Sender: FDA-Public Use
  Company Number: US-BAYER-200841362NA

PATIENT
  Age: 54 Year
  Sex: Male
  Weight: 119 kg

DRUGS (11)
  1. AVELOX [Suspect]
     Indication: DRUG USE FOR UNKNOWN INDICATION
     Dates: start: 20050124
  2. TELITHROMYCIN [Suspect]
     Indication: BRONCHITIS
     Dosage: TOTAL DAILY DOSE: 800 MG  UNIT DOSE: 400 MG
  3. GUAIFENESIN [Suspect]
  4. LIPITOR [Concomitant]
  5. LASIX [Concomitant]
  6. ZETIA [Concomitant]
  7. MESTINON [Concomitant]
  8. POTASSIUM CHLORIDE [Concomitant]
  9. ASPIRIN [Concomitant]
  10. ASCORBIC ACID [Concomitant]
  11. MULTI-VITAMIN [Concomitant]

REACTIONS (7)
  - DIPLOPIA [None]
  - DYSPNOEA [None]
  - EYELID PTOSIS [None]
  - RESPIRATORY ARREST [None]
  - RESPIRATORY FAILURE [None]
  - VISION BLURRED [None]
  - VISUAL IMPAIRMENT [None]
